FAERS Safety Report 9171792 (Version 3)
Quarter: 2014Q2

REPORT INFORMATION
  Report Type: Report from Study
  Country: JP (occurrence: JP)
  Receive Date: 20130319
  Receipt Date: 20140630
  Transmission Date: 20141212
  Serious: Yes (Death, Hospitalization, Other)
  Sender: FDA-Public Use
  Company Number: PHHY2013JP026539

PATIENT
  Age: 76 Year
  Sex: Female

DRUGS (9)
  1. AMN107 [Suspect]
     Indication: CHRONIC MYELOID LEUKAEMIA
     Dosage: 800 MG, DAILY
     Route: 048
     Dates: start: 20100805, end: 20101004
  2. AMN107 [Suspect]
     Dosage: 400 MG, DAILY
     Route: 048
     Dates: start: 20101005
  3. AMN107 [Suspect]
     Dosage: 400 MG, DAILY
     Route: 048
     Dates: start: 20110316
  4. AMARYL [Concomitant]
     Dosage: 2 MG, UNK
     Dates: start: 20100805
  5. AMARYL [Concomitant]
     Dosage: 1 MG, UNK
     Dates: start: 20100805
  6. AMARYL [Concomitant]
     Dosage: 1.5 MG, UNK
  7. OMEPRAL [Concomitant]
     Dosage: 20 MG, UNK
     Route: 048
     Dates: start: 20100805, end: 20121224
  8. CYTOTEC [Concomitant]
     Dosage: 800 MG, UNK
     Route: 048
     Dates: start: 20100805, end: 20101025
  9. NEXIUM//ESOMEPRAZOLE MAGNESIUM [Concomitant]
     Dosage: 20 MG, UNK
     Route: 048
     Dates: start: 20121225

REACTIONS (5)
  - Thyroid cancer [Fatal]
  - Malignant pleural effusion [Fatal]
  - Dyspnoea [Fatal]
  - Diabetes mellitus [Recovering/Resolving]
  - Concomitant disease aggravated [Recovering/Resolving]
